FAERS Safety Report 12870190 (Version 3)
Quarter: 2018Q1

REPORT INFORMATION
  Report Type: Report from Study
  Country: US (occurrence: US)
  Receive Date: 20161020
  Receipt Date: 20180105
  Transmission Date: 20180508
  Serious: No
  Sender: FDA-Public Use
  Company Number: US-AMGEN-USASL2016109627

PATIENT
  Age: 76 Year
  Sex: Female
  Weight: 74.83 kg

DRUGS (1)
  1. REPATHA [Suspect]
     Active Substance: EVOLOCUMAB
     Indication: BLOOD CHOLESTEROL INCREASED
     Dosage: 140 MG, Q2WK
     Route: 058
     Dates: start: 20160701

REACTIONS (7)
  - Urinary incontinence [Unknown]
  - Dry throat [Unknown]
  - Blood pressure increased [Unknown]
  - Drug dose omission [Unknown]
  - Back pain [Unknown]
  - Malaise [Unknown]
  - Fatigue [Unknown]

NARRATIVE: CASE EVENT DATE: 20160806
